FAERS Safety Report 9870957 (Version 1)
Quarter: 2014Q1

REPORT INFORMATION
  Report Type: Spontaneous
  Country: IN (occurrence: None)
  Receive Date: 20140203
  Receipt Date: 20140203
  Transmission Date: 20141002
  Serious: Yes (Hospitalization, Other)
  Sender: FDA-Public Use
  Company Number: AUR-APL-2011-04411

PATIENT
  Age: 25 Year
  Sex: Female

DRUGS (2)
  1. SERTRALINE [Suspect]
     Indication: DEPRESSION
  2. DOSULEPIN (DOSULEPIN) [Suspect]
     Indication: DEPRESSION

REACTIONS (12)
  - Hypomania [None]
  - Extrapyramidal disorder [None]
  - Drug interaction [None]
  - Abdominal pain upper [None]
  - Bradykinesia [None]
  - Tremor [None]
  - Salivary hypersecretion [None]
  - Cough [None]
  - Pyrexia [None]
  - Depression [None]
  - Inappropriate affect [None]
  - Logorrhoea [None]
